FAERS Safety Report 9003213 (Version 1)
Quarter: 2013Q1

REPORT INFORMATION
  Report Type: Spontaneous
  Country: AR (occurrence: AR)
  Receive Date: 20130108
  Receipt Date: 20130108
  Transmission Date: 20140127
  Serious: Yes (Hospitalization)
  Sender: FDA-Public Use
  Company Number: PHHY2013AR001720

PATIENT
  Sex: Female

DRUGS (3)
  1. DIOVAN [Suspect]
     Indication: HYPERTENSION
     Dosage: 1 DF (80MG) DAILY
     Route: 048
  2. DIOVAN [Suspect]
     Dosage: 1 DF (160MG) DAILY
     Route: 048
  3. DIOVAN [Suspect]
     Dosage: 1 DF (320MG), UNK

REACTIONS (2)
  - Aortic occlusion [Recovering/Resolving]
  - Blood pressure inadequately controlled [Recovering/Resolving]
